FAERS Safety Report 6454307-7 (Version None)
Quarter: 2009Q4

REPORT INFORMATION
  Report Type: 
  Country: None (occurrence: None)
  Receive Date: 20091124
  Receipt Date: 20091111
  Transmission Date: 20100525
  Serious: Yes (Other)
  Sender: FDA-Public Use
  Company Number: JP-PFIZER INC-2009296757

PATIENT
  Age: 35 Year
  Sex: Male

DRUGS (4)
  1. METHYLPREDNISOLONE AND METHYLPREDNISOLONE ACETATE AND METHYLPREDNISOLO [Suspect]
     Indication: CASTLEMAN'S DISEASE
     Dosage: 1000 MG, UNK
  2. METHYLPREDNISOLONE AND METHYLPREDNISOLONE ACETATE AND METHYLPREDNISOLO [Suspect]
     Indication: HYPERGAMMAGLOBULINAEMIA
  3. PREDNISOLONE AND PREDNISOLONE STEAGLATE [Concomitant]
     Indication: CASTLEMAN'S DISEASE
     Dosage: 1 MG/KG, UNK
     Route: 048
  4. PREDNISOLONE AND PREDNISOLONE STEAGLATE [Concomitant]
     Indication: HYPERGAMMAGLOBULINAEMIA

REACTIONS (2)
  - HERPES ZOSTER [None]
  - HYPERGLYCAEMIA [None]
